FAERS Safety Report 5614729-0 (Version None)
Quarter: 2008Q1

REPORT INFORMATION
  Report Type: 
  Country: None (occurrence: None)
  Receive Date: 20080201
  Receipt Date: 20080124
  Transmission Date: 20080703
  Serious: Yes (Other)
  Sender: FDA-Public Use
  Company Number: FABR-1000050

PATIENT
  Age: 64 Year
  Sex: Male
  Weight: 49.9 kg

DRUGS (1)
  1. FABRAZYME [Suspect]
     Indication: FABRY'S DISEASE
     Dosage: 1 MG/KG, Q2W
     Dates: start: 20010716

REACTIONS (1)
  - PROSTATE CANCER [None]
